FAERS Safety Report 16181394 (Version 1)
Quarter: 2019Q2

REPORT INFORMATION
  Report Type: Spontaneous
  Country: US (occurrence: US)
  Receive Date: 20190410
  Receipt Date: 20190410
  Transmission Date: 20190711
  Serious: No
  Sender: FDA-Public Use
  Company Number: US-PFIZER INC-2019148922

PATIENT
  Sex: Female

DRUGS (2)
  1. LYRICA [Suspect]
     Active Substance: PREGABALIN
     Indication: NEUROPATHY PERIPHERAL
     Dosage: UNK
  2. LYRICA [Suspect]
     Active Substance: PREGABALIN
     Indication: BURNING SENSATION

REACTIONS (6)
  - Eye disorder [Unknown]
  - Swollen tongue [Unknown]
  - Dysphagia [Unknown]
  - Drug hypersensitivity [Unknown]
  - Pharyngeal swelling [Unknown]
  - Lip swelling [Unknown]
